FAERS Safety Report 9208114 (Version 2)
Quarter: 2013Q2

REPORT INFORMATION
  Report Type: Spontaneous
  Country: US (occurrence: US)
  Receive Date: 20130403
  Receipt Date: 20130515
  Transmission Date: 20140414
  Serious: Yes (Other)
  Sender: FDA-Public Use
  Company Number: US-PERRIGO-13US003203

PATIENT
  Age: 65 Year
  Sex: Female
  Weight: 72.56 kg

DRUGS (17)
  1. ACETAMINOPHEN 500MG 484 [Suspect]
     Indication: PAIN
     Dosage: 500 MG, TID
     Route: 048
     Dates: start: 20130316, end: 20130318
  2. SYMBICORT [Concomitant]
     Indication: ASTHMA
     Dosage: UNK,BID
     Route: 065
     Dates: start: 2012
  3. KLOR-CON [Concomitant]
     Indication: BLOOD POTASSIUM
     Dosage: 20-40MG PRN
     Route: 048
  4. LASIX [Concomitant]
     Indication: FLUID RETENTION
     Dosage: 40-80MG PRN
     Route: 048
  5. XANAX [Concomitant]
     Indication: PANIC ATTACK
     Dosage: 1 MG, TID, AS NEEDED
     Route: 048
  6. XANAX [Concomitant]
     Indication: ANXIETY
  7. CLONIDINE [Concomitant]
     Indication: HYPERTENSION
     Dosage: 0.2 MG, TID
     Route: 048
  8. SKELAXIN [Concomitant]
     Indication: MUSCLE SPASMS
     Dosage: 800 MG, QID
     Route: 048
  9. BACLOFEN [Concomitant]
     Indication: MUSCLE SPASMS
     Dosage: 20 MG, TID
     Route: 048
  10. TOPAMAX [Concomitant]
     Indication: NEUROPATHY PERIPHERAL
     Dosage: 200 MG, BID
     Route: 048
  11. LIPITOR [Concomitant]
     Indication: BLOOD CHOLESTEROL INCREASED
     Dosage: 20 MG, QD
     Route: 065
  12. WELLBUTRIN [Concomitant]
     Indication: DEPRESSION
     Dosage: 150 MG, BID
     Route: 048
  13. EFFEXOR [Concomitant]
     Indication: DEPRESSION
     Dosage: 150 UNK, UNK
     Route: 048
  14. PREMARIN [Concomitant]
     Indication: MENOPAUSE
     Dosage: 625 MCG, QD
     Route: 065
  15. SYNTHROID [Concomitant]
     Indication: HYPOTHYROIDISM
     Dosage: 1075 MCG, QD
     Route: 048
  16. PHETONYL PATCH [Concomitant]
     Indication: ASTHMA
     Dosage: UNK
     Route: 062
     Dates: start: 201103
  17. PROAIR HFA [Concomitant]
     Indication: ASTHMA
     Dosage: UNK
     Route: 065
     Dates: start: 2012

REACTIONS (3)
  - Asthma [Recovered/Resolved]
  - Throat tightness [Recovered/Resolved]
  - Underdose [Recovered/Resolved]
